FAERS Safety Report 7001171-3 (Version None)
Quarter: 2010Q3

REPORT INFORMATION
  Report Type: 
  Country: None (occurrence: None)
  Receive Date: 20100920
  Receipt Date: 20100205
  Transmission Date: 20110219
  Serious: Yes (Hospitalization)
  Sender: FDA-Public Use
  Company Number: US-ASTRAZENECA-2010SE01692

PATIENT
  Age: 37 Year
  Sex: Female

DRUGS (10)
  1. SEROQUEL [Suspect]
     Dosage: 25 TO 200 MG
     Route: 048
     Dates: start: 20050104
  2. TRAZODONE HCL [Concomitant]
     Dates: start: 20050104
  3. LEXAPRO [Concomitant]
     Dosage: 10 TO 20 MG
     Dates: start: 20050104
  4. HYDROXYZINE PAM [Concomitant]
     Dosage: 50
     Dates: start: 20061026
  5. CITALOPRAM HYDROBROMIDE [Concomitant]
     Dosage: 20
     Dates: start: 20061026
  6. LORAZEPAM [Concomitant]
     Dates: start: 20071218
  7. COZAAR [Concomitant]
     Route: 048
     Dates: start: 20081205
  8. GEMFIBROZIL [Concomitant]
     Route: 048
     Dates: start: 20081205
  9. NEXIUM [Concomitant]
     Route: 048
     Dates: start: 20081205
  10. NORVASC [Concomitant]
     Route: 048
     Dates: start: 20081205

REACTIONS (2)
  - DIABETES MELLITUS [None]
  - DIABETES MELLITUS INADEQUATE CONTROL [None]
